FAERS Safety Report 8984402 (Version 1)
Quarter: 2012Q4

REPORT INFORMATION
  Report Type: Report from Study
  Country: DE (occurrence: DE)
  Receive Date: 20121225
  Receipt Date: 20121225
  Transmission Date: 20130627
  Serious: Yes (Life-Threatening)
  Sender: FDA-Public Use
  Company Number: DE-BRISTOL-MYERS SQUIBB COMPANY-17213638

PATIENT
  Age: 45 Year
  Sex: Female
  Weight: 121 kg

DRUGS (7)
  1. PACLITAXEL [Suspect]
     Indication: BREAST CANCER METASTATIC
     Dosage: Interrupted on 14Apr10.Restarted on 24Apr10-ong
     Route: 042
     Dates: start: 20100121
  2. BEVACIZUMAB [Suspect]
     Indication: BREAST CANCER METASTATIC
     Route: 042
     Dates: start: 20100121, end: 20100414
  3. NAPROXEN [Concomitant]
     Dosage: 1 DF-500 Unit NOS
  4. LYRICA [Concomitant]
     Dosage: 1 DF-150 Unit NOS
  5. AMITRIPTYLINE [Concomitant]
     Dosage: 1 DF- 25Unit NOS
  6. OMEPRAZOLE [Concomitant]
     Dosage: 1 DF- 20 Unit NOS
  7. L-THYROXINE [Concomitant]
     Dosage: 1 DF- 75 Unit NOS

REACTIONS (1)
  - Pulmonary embolism [Recovered/Resolved]
